FAERS Safety Report 24692897 (Version 1)
Quarter: 2024Q4

REPORT INFORMATION
  Report Type: Spontaneous
  Country: GB (occurrence: GB)
  Receive Date: 20241203
  Receipt Date: 20241203
  Transmission Date: 20250114
  Serious: Yes (Death, Other)
  Sender: NOVARTIS
  Company Number: GB-002147023-NVSC2024GB229957

PATIENT

DRUGS (1)
  1. KYMRIAH [Suspect]
     Active Substance: TISAGENLECLEUCEL
     Indication: Product used for unknown indication
     Dosage: UNK, ONCE/SINGLE
     Route: 042

REACTIONS (4)
  - Death [Fatal]
  - Septic shock [Unknown]
  - Anaemia [Unknown]
  - Neutrophil count abnormal [Unknown]
